FAERS Safety Report 21592550 (Version 1)
Quarter: 2022Q4

REPORT INFORMATION
  Report Type: Spontaneous
  Country: US (occurrence: None)
  Receive Date: 20221113
  Receipt Date: 20221113
  Transmission Date: 20230113
  Serious: Yes (Death)
  Sender: FDA-Public Use
  Company Number: None

PATIENT
  Age: 70 Year
  Sex: Female
  Weight: 72.57 kg

DRUGS (32)
  1. IBRANCE [Suspect]
     Active Substance: PALBOCICLIB
     Indication: Breast cancer female
     Dosage: OTHER FREQUENCY : 21D ON 7D OFF;?
     Route: 048
  2. ACETAMINOPHEN [Concomitant]
     Active Substance: ACETAMINOPHEN
  3. ACETAMINOPHEN\CODEINE PHOSPHATE [Concomitant]
     Active Substance: ACETAMINOPHEN\CODEINE PHOSPHATE
  4. AMLODIPINE [Concomitant]
     Active Substance: AMLODIPINE BESYLATE
  5. ASCORBIC ACID [Concomitant]
     Active Substance: ASCORBIC ACID
  6. ASPIRIN [Concomitant]
     Active Substance: ASPIRIN
  7. BENADRYL [Concomitant]
     Active Substance: DIPHENHYDRAMINE HYDROCHLORIDE
  8. BIOTENE NOS [Concomitant]
     Active Substance: CETYLPYRIDINIUM CHLORIDE OR SODIUM FLUORIDE OR SODIUM MONOFLUOROPHOSPHATE OR GLUCOSE OXIDASE\LACTOFE
  9. COLACE [Concomitant]
     Active Substance: DOCUSATE SODIUM
  10. CRANBERRY [Concomitant]
     Active Substance: CRANBERRY
  11. EFFEXOR XR [Concomitant]
     Active Substance: VENLAFAXINE HYDROCHLORIDE
  12. ESTRACE [Concomitant]
     Active Substance: ESTRADIOL
  13. FASLODEX [Concomitant]
     Active Substance: FULVESTRANT
  14. FLONASE [Concomitant]
     Active Substance: FLUTICASONE PROPIONATE
  15. INGREZZA [Concomitant]
     Active Substance: VALBENAZINE
  16. KEPPRA [Concomitant]
     Active Substance: LEVETIRACETAM
  17. LAMICTAL [Concomitant]
     Active Substance: LAMOTRIGINE
  18. LIPITOR [Concomitant]
     Active Substance: ATORVASTATIN CALCIUM
  19. MINIPRESS [Concomitant]
     Active Substance: PRAZOSIN HYDROCHLORIDE
  20. MYRBETRIQ [Concomitant]
     Active Substance: MIRABEGRON
  21. NITROSTAT [Concomitant]
     Active Substance: NITROGLYCERIN
  22. OCUVITE-LUTEIN [Concomitant]
  23. PEPCID [Concomitant]
     Active Substance: FAMOTIDINE
  24. PROPYLENE GLYCOL [Concomitant]
     Active Substance: PROPYLENE GLYCOL
  25. RESTASIS [Concomitant]
     Active Substance: CYCLOSPORINE
  26. SYNTHROID [Concomitant]
     Active Substance: LEVOTHYROXINE SODIUM
  27. SYSTANE OPTHALMIC [Concomitant]
  28. TAMOXIFEN [Concomitant]
     Active Substance: TAMOXIFEN
  29. VITAMINS [Concomitant]
     Active Substance: VITAMINS
  30. TRADJENTA [Concomitant]
     Active Substance: LINAGLIPTIN
  31. VOLTAREN [Concomitant]
     Active Substance: DICLOFENAC SODIUM
  32. ZYRTEC [Concomitant]
     Active Substance: CETIRIZINE HYDROCHLORIDE

REACTIONS (1)
  - Death [None]

NARRATIVE: CASE EVENT DATE: 20221113
